FAERS Safety Report 16096294 (Version 1)
Quarter: 2019Q1

REPORT INFORMATION
  Report Type: Report from Study
  Country: TN (occurrence: TN)
  Receive Date: 20190320
  Receipt Date: 20190320
  Transmission Date: 20190418
  Serious: Yes (Other)
  Sender: FDA-Public Use
  Company Number: TN-SA-2019SA072269

PATIENT
  Age: 8 Year
  Sex: Male

DRUGS (1)
  1. INSULIN GLARGINE [Suspect]
     Active Substance: INSULIN GLARGINE
     Indication: DIABETES MELLITUS
     Dosage: 8 U, QD
     Route: 058
     Dates: start: 20180319

REACTIONS (7)
  - Diarrhoea [Recovered/Resolved]
  - Vomiting [Recovered/Resolved]
  - Coeliac disease [Recovered/Resolved]
  - Abnormal faeces [Recovered/Resolved]
  - Gastrooesophageal reflux disease [Recovered/Resolved]
  - Gastrointestinal infection [Recovered/Resolved]
  - Pallor [Recovered/Resolved]

NARRATIVE: CASE EVENT DATE: 201901
